FAERS Safety Report 7644803-9 (Version None)
Quarter: 2011Q3

REPORT INFORMATION
  Report Type: 
  Country: None (occurrence: None)
  Receive Date: 20110725
  Receipt Date: 20110711
  Transmission Date: 20111222
  Serious: Yes (Hospitalization)
  Sender: FDA-Public Use
  Company Number: 2011MA008878

PATIENT
  Age: 67 Year
  Sex: Male

DRUGS (1)
  1. METFORMIN HYDROCHLORIDE [Suspect]
     Indication: DIABETES MELLITUS
     Dosage: 1 GM;BID;PO
     Route: 048
     Dates: start: 20090203, end: 20110404

REACTIONS (2)
  - AORTIC STENOSIS [None]
  - DYSPNOEA EXERTIONAL [None]
